FAERS Safety Report 20714111 (Version 8)
Quarter: 2023Q4

REPORT INFORMATION
  Report Type: Spontaneous
  Country: US (occurrence: US)
  Receive Date: 20220415
  Receipt Date: 20231117
  Transmission Date: 20240110
  Serious: Yes (Hospitalization, Other)
  Sender: FDA-Public Use
  Company Number: US-PFIZER INC-2020241386

PATIENT
  Age: 79 Year
  Sex: Male
  Weight: 79.365 kg

DRUGS (14)
  1. VYNDAMAX [Suspect]
     Active Substance: TAFAMIDIS
     Indication: Acquired ATTR amyloidosis
     Dosage: 61 MG, 1X/DAY
     Route: 048
     Dates: start: 2020
  2. VYNDAMAX [Suspect]
     Active Substance: TAFAMIDIS
     Indication: Cardiac amyloidosis
     Dosage: 61 MG, 1X/DAY
     Dates: start: 2020
  3. VYNDAMAX [Suspect]
     Active Substance: TAFAMIDIS
     Dosage: 61 MG, 1X/DAY, (EVERY MORNING)
     Route: 048
     Dates: start: 2020
  4. ATORVASTATIN [Suspect]
     Active Substance: ATORVASTATIN
     Dosage: 40 MG, 1X/DAY
     Dates: start: 2020
  5. CREON [Suspect]
     Active Substance: PANCRELIPASE AMYLASE\PANCRELIPASE LIPASE\PANCRELIPASE PROTEASE
     Indication: Pancreatic failure
     Dosage: BEFORE MEALS
     Dates: start: 2019
  6. COLCHICINE [Suspect]
     Active Substance: COLCHICINE
     Indication: Gout
     Dosage: 0.6 MG, 1X/DAY
     Dates: start: 2021
  7. MIDODRINE [Concomitant]
     Active Substance: MIDODRINE
     Dosage: 10 MG
  8. MIDODRINE [Concomitant]
     Active Substance: MIDODRINE
     Dosage: 5 MG, 2X/DAY
  9. BUMETANIDE [Concomitant]
     Active Substance: BUMETANIDE
     Dosage: UNK
     Dates: start: 2021
  10. DIGOXIN [Concomitant]
     Active Substance: DIGOXIN
     Dosage: 125 MG
     Dates: start: 2021
  11. ASPIRIN [Concomitant]
     Active Substance: ASPIRIN
     Dosage: UNK
     Dates: start: 2021
  12. CITALOPRAM [Concomitant]
     Active Substance: CITALOPRAM HYDROBROMIDE
     Indication: African trypanosomiasis
     Dosage: 40 MG, AS NEEDED (AT NIGHT)
     Dates: start: 2023
  13. ALLOPURINOL [Concomitant]
     Active Substance: ALLOPURINOL
     Dosage: 100 MG, 1X/DAY
     Dates: start: 2022
  14. HYDROXYZINE [Concomitant]
     Active Substance: HYDROXYZINE HYDROCHLORIDE
     Indication: Pruritus
     Dosage: 25 MG, AS NEEDED

REACTIONS (25)
  - Cardiac amyloidosis [Recovered/Resolved]
  - Cerebral disorder [Not Recovered/Not Resolved]
  - Condition aggravated [Not Recovered/Not Resolved]
  - Blood disorder [Not Recovered/Not Resolved]
  - Loss of consciousness [Recovered/Resolved]
  - Hypotension [Recovered/Resolved]
  - Fall [Recovered/Resolved]
  - Cardiac failure [Unknown]
  - Aortic valve disease [Recovered/Resolved]
  - Deafness [Not Recovered/Not Resolved]
  - Weight decreased [Recovered/Resolved]
  - Loss of personal independence in daily activities [Recovered/Resolved]
  - Fatigue [Not Recovered/Not Resolved]
  - Affective disorder [Not Recovered/Not Resolved]
  - Joint swelling [Not Recovered/Not Resolved]
  - Skin discolouration [Recovered/Resolved]
  - Gait disturbance [Not Recovered/Not Resolved]
  - Malaise [Recovered/Resolved]
  - Burning sensation [Recovered/Resolved]
  - Body height decreased [Recovered/Resolved]
  - Balance disorder [Recovering/Resolving]
  - Platelet count decreased [Not Recovered/Not Resolved]
  - Sleep disorder [Not Recovered/Not Resolved]
  - Nasopharyngitis [Unknown]
  - Pain [Unknown]

NARRATIVE: CASE EVENT DATE: 20220101
